FAERS Safety Report 6197326-0 (Version None)
Quarter: 2009Q2

REPORT INFORMATION
  Report Type: 
  Country: None (occurrence: None)
  Receive Date: 20090518
  Receipt Date: 20090505
  Transmission Date: 20091009
  Serious: Yes (Hospitalization)
  Sender: FDA-Public Use
  Company Number: 2009AP001535

PATIENT
  Age: 54 Year
  Sex: Male

DRUGS (3)
  1. RANITIDINE HYDROCHLORIDE [Suspect]
     Dosage: 4500 MG; 1X PO
     Route: 048
  2. RAMIPRIL [Suspect]
     Indication: HYPERTENSION
     Dosage: 300 MG; PO
     Route: 048
  3. SIMVASTATIN [Suspect]
     Dosage: 600 MG; PO
     Route: 048

REACTIONS (3)
  - HAEMODYNAMIC INSTABILITY [None]
  - HYPOTENSION [None]
  - MULTIPLE DRUG OVERDOSE [None]
